FAERS Safety Report 7293661-3 (Version None)
Quarter: 2011Q1

REPORT INFORMATION
  Report Type: 
  Country: None (occurrence: None)
  Receive Date: 20110215
  Receipt Date: 20110204
  Transmission Date: 20110831
  Serious: Yes (Disabling)
  Sender: FDA-Public Use
  Company Number: B0685809A

PATIENT
  Sex: Male
  Weight: 86 kg

DRUGS (5)
  1. SINEMET [Concomitant]
     Indication: PARKINSON'S DISEASE
     Dates: start: 20100101
  2. REQUIP XL [Suspect]
     Indication: PARKINSON'S DISEASE
     Route: 048
     Dates: start: 20080828, end: 20101201
  3. RASAGILINE MESYLATE [Concomitant]
  4. ROPINIROLE [Suspect]
     Indication: PARKINSON'S DISEASE
     Route: 065
     Dates: start: 20000721
  5. CO-CARELDOPA [Concomitant]

REACTIONS (21)
  - PERSONALITY CHANGE [None]
  - ORTHOSTATIC HYPOTENSION [None]
  - THINKING ABNORMAL [None]
  - SOMNOLENCE [None]
  - EXCESSIVE SEXUAL FANTASIES [None]
  - DEMENTIA [None]
  - DEPRESSION [None]
  - LIBIDO INCREASED [None]
  - IMPULSE-CONTROL DISORDER [None]
  - OBSESSIVE THOUGHTS [None]
  - PARANOIA [None]
  - SLEEP DISORDER [None]
  - DEPENDENCE [None]
  - AGGRESSION [None]
  - PANIC ATTACK [None]
  - SUDDEN ONSET OF SLEEP [None]
  - SUICIDAL IDEATION [None]
  - OVERDOSE [None]
  - OBSESSIVE-COMPULSIVE DISORDER [None]
  - WITHDRAWAL SYNDROME [None]
  - DISTURBANCE IN SEXUAL AROUSAL [None]
